FAERS Safety Report 14280442 (Version 10)
Quarter: 2020Q4

REPORT INFORMATION
  Report Type: Spontaneous
  Country: US (occurrence: US)
  Receive Date: 20171213
  Receipt Date: 20201224
  Transmission Date: 20210113
  Serious: Yes (Congenital Anomaly, Other)
  Sender: FDA-Public Use
  Company Number: PHEH2017US039728

PATIENT
  Sex: Male

DRUGS (2)
  1. ONDANSETRON [Suspect]
     Active Substance: ONDANSETRON
     Indication: FOETAL EXPOSURE DURING PREGNANCY
     Dosage: MOTHER^S DOSE: 4 MG, Q6H, PRN
     Route: 064
  2. ZOFRAN [Suspect]
     Active Substance: ONDANSETRON HYDROCHLORIDE
     Indication: FOETAL EXPOSURE DURING PREGNANCY
     Dosage: MOTHER^S DOSE: 1 DF, PRN
     Route: 064

REACTIONS (57)
  - Hypoxia [Unknown]
  - Nasal congestion [Unknown]
  - Regurgitation [Unknown]
  - Dyspnoea [Unknown]
  - Pain [Unknown]
  - Eye pruritus [Unknown]
  - Mastication disorder [Unknown]
  - Dysphagia [Unknown]
  - Language disorder [Unknown]
  - Otospondylomegaepiphyseal dysplasia [Unknown]
  - Otitis media chronic [Unknown]
  - Failure to thrive [Unknown]
  - Injury [Unknown]
  - Sleep apnoea syndrome [Unknown]
  - Decreased appetite [Unknown]
  - Rash [Unknown]
  - Obstructive airways disorder [Unknown]
  - Respiration abnormal [Unknown]
  - Enuresis [Unknown]
  - Seasonal allergy [Unknown]
  - Micrognathia [Unknown]
  - Otitis media [Unknown]
  - Eustachian tube dysfunction [Unknown]
  - Rhinorrhoea [Unknown]
  - Wheezing [Unknown]
  - Productive cough [Recovering/Resolving]
  - Nasal turbinate hypertrophy [Unknown]
  - Laryngomalacia [Unknown]
  - Pneumonia [Unknown]
  - Conductive deafness [Unknown]
  - Viral infection [Unknown]
  - Candida infection [Unknown]
  - Otorrhoea [Unknown]
  - Ear infection [Unknown]
  - Feeding disorder [Unknown]
  - Bronchiolitis [Unknown]
  - Stridor [Unknown]
  - Ear pain [Unknown]
  - Fatigue [Unknown]
  - Snoring [Unknown]
  - Speech disorder [Unknown]
  - Retrognathia [Unknown]
  - Glossoptosis [Unknown]
  - Upper respiratory tract infection [Unknown]
  - Adenoidal hypertrophy [Unknown]
  - Weight decreased [Unknown]
  - Cleft palate [Unknown]
  - Chest pain [Unknown]
  - Middle ear effusion [Unknown]
  - Cyanosis [Unknown]
  - Nasal pruritus [Unknown]
  - Foetal exposure during pregnancy [Unknown]
  - Cough [Unknown]
  - Bronchitis [Unknown]
  - Tonsillar hypertrophy [Unknown]
  - Pyrexia [Unknown]
  - Anaemia [Unknown]
